FAERS Safety Report 6145730-9 (Version None)
Quarter: 2009Q2

REPORT INFORMATION
  Report Type: 
  Country: None (occurrence: None)
  Receive Date: 20090407
  Receipt Date: 20090330
  Transmission Date: 20091009
  Serious: Yes (Hospitalization)
  Sender: FDA-Public Use
  Company Number: DE-ELI_LILLY_AND_COMPANY-DE200903007688

PATIENT
  Sex: Male

DRUGS (9)
  1. BYETTA [Suspect]
     Dosage: 10 UG, UNKNOWN
     Route: 058
     Dates: start: 20070901
  2. INSULIN [Concomitant]
     Dosage: UNK, UNKNOWN
     Route: 065
     Dates: end: 20070901
  3. METFORMIN HCL [Concomitant]
     Dosage: 1000 MG, UNKNOWN
     Route: 065
  4. ASPIRIN [Concomitant]
     Dosage: UNK, UNKNOWN
     Route: 065
  5. BISOPROLOL [Concomitant]
     Dosage: UNK, UNKNOWN
     Route: 065
  6. SPIRONOLAKTON [Concomitant]
     Dosage: 100 MG, EACH MORNING
     Route: 065
  7. SIMVASTATIN [Concomitant]
     Dosage: 10 MG, EACH EVENING
     Route: 065
  8. LISINOPRIL /00894001/ [Concomitant]
     Dosage: 20 MG, UNKNOWN
     Route: 065
  9. CITALOPRAM [Concomitant]
     Dosage: UNK, UNKNOWN
     Route: 065

REACTIONS (11)
  - ABDOMINAL PAIN [None]
  - ANOREXIA [None]
  - ARTHRALGIA [None]
  - BLADDER OPERATION [None]
  - BLOOD GLUCOSE INCREASED [None]
  - CARDIAC PACEMAKER INSERTION [None]
  - CATARACT [None]
  - CORONARY ARTERY DISEASE [None]
  - HOSPITALISATION [None]
  - PROSTATIC OPERATION [None]
  - WEIGHT DECREASED [None]
